FAERS Safety Report 5156455-0 (Version None)
Quarter: 2006Q4

REPORT INFORMATION
  Report Type: 
  Country: None (occurrence: None)
  Receive Date: 20061113
  Receipt Date: 20061031
  Transmission Date: 20070319
  Serious: Yes (Other)
  Sender: FDA-Public Use
  Company Number: 2006099205

PATIENT
  Age: 12 Year
  Sex: Female
  Weight: 58.1 kg

DRUGS (4)
  1. REVATIO [Suspect]
     Indication: PULMONARY HYPERTENSION
     Dosage: 120 MG (40 MG, 3 IN 1 D)
     Dates: start: 20060701
  2. FLOLAN [Concomitant]
  3. PREVACID [Concomitant]
  4. PROPRANOLOL [Concomitant]

REACTIONS (4)
  - EYE SWELLING [None]
  - HEADACHE [None]
  - LIP SWELLING [None]
  - THERAPY NON-RESPONDER [None]
